FAERS Safety Report 19619589 (Version 1)
Quarter: 2021Q3

REPORT INFORMATION
  Report Type: Spontaneous
  Country: US (occurrence: US)
  Receive Date: 20210728
  Receipt Date: 20210728
  Transmission Date: 20211014
  Serious: No
  Sender: FDA-Public Use
  Company Number: US-ROCHE-2756282

PATIENT
  Age: 42 Year
  Sex: Female

DRUGS (1)
  1. XELODA [Suspect]
     Active Substance: CAPECITABINE
     Indication: PRODUCT USED FOR UNKNOWN INDICATION
     Route: 048
     Dates: start: 202012

REACTIONS (12)
  - Hypoaesthesia oral [Unknown]
  - Skin disorder [Unknown]
  - Feeling hot [Unknown]
  - Headache [Recovered/Resolved]
  - Product dose omission in error [Unknown]
  - Erythema [Unknown]
  - Burning sensation [Unknown]
  - Heart rate increased [Unknown]
  - Eye pain [Recovered/Resolved]
  - Bone pain [Unknown]
  - Nausea [Unknown]
  - Visual impairment [Unknown]

NARRATIVE: CASE EVENT DATE: 20210111
